FAERS Safety Report 9455259 (Version 2)
Quarter: 2013Q3

REPORT INFORMATION
  Report Type: Spontaneous
  Country: ZA (occurrence: ZA)
  Receive Date: 20130813
  Receipt Date: 20130911
  Transmission Date: 20140515
  Serious: No
  Sender: FDA-Public Use
  Company Number: ZA-JNJFOC-20130802545

PATIENT
  Sex: Female

DRUGS (8)
  1. DUROGESIC MATRIX [Suspect]
     Indication: BONE PAIN
     Dosage: 12.5 UG/HR + 100 UG/HR
     Route: 062
  2. DUROGESIC MATRIX [Suspect]
     Indication: BONE PAIN
     Dosage: 12.5 UG/HR + 75 UG/HR
     Route: 062
     Dates: start: 20130801
  3. DUROGESIC MATRIX [Suspect]
     Indication: BONE PAIN
     Dosage: 12.5 UG/HR + 25 UG/HR
     Route: 062
     Dates: start: 20130729
  4. DUROGESIC MATRIX [Suspect]
     Indication: BONE PAIN
     Route: 062
     Dates: start: 201305
  5. MORPHINE [Concomitant]
     Indication: PAIN
     Dosage: 3.5MG/5ML
     Route: 048
  6. VOLTAREN [Concomitant]
     Indication: PAIN
     Route: 054
  7. TENSTON [Concomitant]
     Indication: PAIN
     Route: 048
  8. PANADO [Concomitant]
     Indication: PAIN
     Route: 048

REACTIONS (6)
  - Vomiting [Recovered/Resolved]
  - Product quality issue [Unknown]
  - Inadequate analgesia [Recovered/Resolved]
  - Wrong technique in drug usage process [Unknown]
  - Wrong technique in drug usage process [Recovered/Resolved]
  - Drug prescribing error [Unknown]
